FAERS Safety Report 9022512 (Version 1)
Quarter: 2013Q1

REPORT INFORMATION
  Report Type: Spontaneous
  Country: US (occurrence: US)
  Receive Date: 20130118
  Receipt Date: 20130118
  Transmission Date: 20140127
  Serious: Yes (Hospitalization)
  Sender: FDA-Public Use
  Company Number: US-BAYER-2013-004495

PATIENT
  Age: 23 Year
  Sex: Female

DRUGS (5)
  1. YAZ [Suspect]
     Dosage: UNK
  2. BEYAZ [Suspect]
     Dosage: UNK
  3. IBUPROFEN [Concomitant]
     Dosage: UNK
  4. LORAZEPAM [Concomitant]
     Dosage: UNK
  5. VEETIDS [Concomitant]
     Dosage: UNK

REACTIONS (2)
  - Cerebellar infarction [None]
  - Embolic stroke [None]
